FAERS Safety Report 8896279 (Version 1)
Quarter: 2012Q4

REPORT INFORMATION
  Report Type: Spontaneous
  Country: US (occurrence: None)
  Receive Date: 20121106
  Receipt Date: 20121106
  Transmission Date: 20130627
  Serious: Yes (Other)
  Sender: FDA-Public Use
  Company Number: None

PATIENT
  Age: 26 Year
  Sex: Female
  Weight: 69.4 kg

DRUGS (1)
  1. CYMBALTA [Suspect]
     Indication: ANXIETY
     Dosage: 60  Daily
     Dates: start: 20070101, end: 20121010

REACTIONS (10)
  - Drug withdrawal syndrome [None]
  - Dizziness [None]
  - Paraesthesia [None]
  - Diarrhoea [None]
  - Vomiting [None]
  - Weight decreased [None]
  - Abdominal pain upper [None]
  - Myalgia [None]
  - Pain in extremity [None]
  - Irritability [None]
